FAERS Safety Report 5706468-2 (Version None)
Quarter: 2008Q2

REPORT INFORMATION
  Report Type: 
  Country: None (occurrence: None)
  Receive Date: 20080414
  Receipt Date: 20080402
  Transmission Date: 20081010
  Serious: Yes (Hospitalization)
  Sender: FDA-Public Use
  Company Number: 2007BI002982

PATIENT
  Age: 49 Year
  Sex: Male
  Weight: 170 kg

DRUGS (1)
  1. AVONEX [Suspect]
     Indication: MULTIPLE SCLEROSIS
     Dosage: 30 UG;QW;IM
     Route: 030
     Dates: start: 20031221

REACTIONS (12)
  - ARTHRITIS [None]
  - BACK PAIN [None]
  - CHILLS [None]
  - DYSTONIA [None]
  - INFLUENZA LIKE ILLNESS [None]
  - INTERVERTEBRAL DISC DISORDER [None]
  - MUSCLE CONTRACTURE [None]
  - NECK PAIN [None]
  - NERVE COMPRESSION [None]
  - PARALYSIS [None]
  - PROCEDURAL COMPLICATION [None]
  - VOMITING [None]
